FAERS Safety Report 4637001-4 (Version None)
Quarter: 2005Q2

REPORT INFORMATION
  Report Type: 
  Country: None (occurrence: None)
  Receive Date: 20050414
  Receipt Date: 20050407
  Transmission Date: 20051028
  Serious: Yes (Hospitalization)
  Sender: FDA-Public Use
  Company Number: US-2005-000626

PATIENT
  Age: 24 Year
  Sex: Female
  Weight: 78 kg

DRUGS (1)
  1. MIRENA [Suspect]
     Indication: CONTRACEPTION
     Dosage: 20 UG/DAY INTRA-UTERINE
     Route: 015
     Dates: start: 20040123, end: 20050126

REACTIONS (3)
  - AMENORRHOEA [None]
  - EPILEPSY [None]
  - GRAND MAL CONVULSION [None]
